FAERS Safety Report 4830553-0 (Version None)
Quarter: 2005Q4

REPORT INFORMATION
  Report Type: 
  Country: None (occurrence: None)
  Receive Date: 20051115
  Receipt Date: 20051031
  Transmission Date: 20060501
  Serious: Yes (Hospitalization)
  Sender: FDA-Public Use
  Company Number: DSA_27349_2005

PATIENT
  Age: 84 Year
  Sex: Female

DRUGS (7)
  1. ENALAPRIL MALEATE [Suspect]
     Indication: HYPERTENSION
     Dosage: DF PO
     Route: 048
     Dates: start: 20000101, end: 20020101
  2. UNSPECIFIED BETA BLOCKER [Concomitant]
  3. CLOMIPRAMINE HCL [Concomitant]
  4. DIDRONEL [Concomitant]
  5. METHOTREXATE [Concomitant]
  6. CORVATON [Concomitant]
  7. DELIX [Concomitant]

REACTIONS (2)
  - AUTOIMMUNE DISORDER [None]
  - PULMONARY FIBROSIS [None]
